FAERS Safety Report 21531610 (Version 1)
Quarter: 2022Q4

REPORT INFORMATION
  Report Type: Spontaneous
  Country: US (occurrence: None)
  Receive Date: 20221028
  Receipt Date: 20221028
  Transmission Date: 20230112
  Serious: Yes (Life-Threatening, Hospitalization)
  Sender: FDA-Public Use
  Company Number: None

PATIENT
  Age: 74 Year
  Sex: Male
  Weight: 90 kg

DRUGS (2)
  1. PROPRANOLOL [Suspect]
     Active Substance: PROPRANOLOL HYDROCHLORIDE
     Indication: Myasthenia gravis crisis
  2. SOTALOL [Concomitant]
     Active Substance: SOTALOL
     Dosage: FREQUENCY : DAILY;?

REACTIONS (2)
  - Myasthenia gravis crisis [None]
  - Respiratory failure [None]

NARRATIVE: CASE EVENT DATE: 20220506
